FAERS Safety Report 22114831 (Version 1)
Quarter: 2023Q1

REPORT INFORMATION
  Report Type: Report from Study
  Country: BR (occurrence: BR)
  Receive Date: 20230320
  Receipt Date: 20230320
  Transmission Date: 20230417
  Serious: Yes (Other)
  Sender: FDA-Public Use
  Company Number: BR-CELLTRION INC.-2023BR005751

PATIENT

DRUGS (3)
  1. TRUXIMA [Suspect]
     Active Substance: RITUXIMAB-ABBS
     Indication: Neuromyelitis optica spectrum disorder
     Dosage: 4 AMPOULES EVERY 6 MONTHS
     Route: 042
  2. METHOTREXATE [Concomitant]
     Active Substance: METHOTREXATE
     Indication: Neuromyelitis optica spectrum disorder
     Dosage: 10 PILLS PER WEEK
     Route: 048
     Dates: start: 202207
  3. PREDNISONE [Concomitant]
     Active Substance: PREDNISONE
     Indication: Neuromyelitis optica spectrum disorder
     Dosage: 1 PILL PER DAY
     Route: 048
     Dates: start: 202207

REACTIONS (2)
  - Neuromyelitis optica spectrum disorder [Unknown]
  - Off label use [Unknown]
